FAERS Safety Report 16007738 (Version 2)
Quarter: 2019Q1

REPORT INFORMATION
  Report Type: Spontaneous
  Country: US (occurrence: US)
  Receive Date: 20190226
  Receipt Date: 20190308
  Transmission Date: 20190418
  Serious: Yes (Other)
  Sender: FDA-Public Use
  Company Number: US-ASTRAZENECA-2018SF25813

PATIENT
  Sex: Male
  Weight: 95.7 kg

DRUGS (19)
  1. PREDNISONE. [Concomitant]
     Active Substance: PREDNISONE
  2. TYLENOL [Concomitant]
     Active Substance: ACETAMINOPHEN
  3. TEMAZEPAM. [Concomitant]
     Active Substance: TEMAZEPAM
  4. IBUPROFEN. [Concomitant]
     Active Substance: IBUPROFEN
  5. NEXIUM [Suspect]
     Active Substance: ESOMEPRAZOLE MAGNESIUM
     Route: 048
     Dates: start: 200807, end: 200807
  6. ATENOLOL. [Concomitant]
     Active Substance: ATENOLOL
  7. ATENOLOL. [Concomitant]
     Active Substance: ATENOLOL
  8. ASPIRIN. [Concomitant]
     Active Substance: ASPIRIN
  9. PENICILLIN V [Concomitant]
     Active Substance: PENICILLIN V
  10. FELODIPINE. [Concomitant]
     Active Substance: FELODIPINE
  11. PREDNISONE. [Concomitant]
     Active Substance: PREDNISONE
  12. AMOXICILLIN. [Concomitant]
     Active Substance: AMOXICILLIN
  13. NEORAL [Concomitant]
     Active Substance: CYCLOSPORINE
  14. GENGRAF [Concomitant]
     Active Substance: CYCLOSPORINE
  15. ACETAMINOPHEN CODEINE [Concomitant]
     Active Substance: ACETAMINOPHEN\CODEINE PHOSPHATE
  16. NEXIUM [Suspect]
     Active Substance: ESOMEPRAZOLE MAGNESIUM
     Route: 048
     Dates: start: 20080715, end: 20080815
  17. CELLCEPT [Concomitant]
     Active Substance: MYCOPHENOLATE MOFETIL\MYCOPHENOLATE MOFETIL HYDROCHLORIDE
  18. PLENDIL [Concomitant]
     Active Substance: FELODIPINE
  19. VIAGRA [Concomitant]
     Active Substance: SILDENAFIL CITRATE

REACTIONS (5)
  - End stage renal disease [Unknown]
  - Chronic kidney disease [Unknown]
  - Acute kidney injury [Unknown]
  - Renal injury [Unknown]
  - Renal failure [Unknown]
